FAERS Safety Report 19014432 (Version 3)
Quarter: 2021Q2

REPORT INFORMATION
  Report Type: Spontaneous
  Country: US (occurrence: US)
  Receive Date: 20210316
  Receipt Date: 20210414
  Transmission Date: 20210717
  Serious: Yes (Other)
  Sender: FDA-Public Use
  Company Number: US-SA-2021SA074270

PATIENT
  Age: 50 Year
  Sex: Male

DRUGS (1)
  1. APIDRA [Suspect]
     Active Substance: INSULIN GLULISINE
     Indication: TYPE 2 DIABETES MELLITUS
     Dosage: 15 IU, TID (ONCE WITH EVERY MEALS)
     Route: 065

REACTIONS (12)
  - Hypoaesthesia [Unknown]
  - Oesophagitis [Unknown]
  - Euphoric mood [Unknown]
  - Angina pectoris [Unknown]
  - Abdominal pain upper [Unknown]
  - Dizziness [Unknown]
  - Dysphagia [Unknown]
  - Back pain [Unknown]
  - Musculoskeletal stiffness [Unknown]
  - Muscle twitching [Unknown]
  - Taste disorder [Unknown]
  - Urinary incontinence [Unknown]

NARRATIVE: CASE EVENT DATE: 20210209
